FAERS Safety Report 15773277 (Version 3)
Quarter: 2020Q2

REPORT INFORMATION
  Report Type: Report from Study
  Country: KR (occurrence: KR)
  Receive Date: 20181228
  Receipt Date: 20200528
  Transmission Date: 20200713
  Serious: Yes (Death, Hospitalization)
  Sender: FDA-Public Use
  Company Number: KR-CELGENEUS-KOR-20181207485

PATIENT
  Age: 57 Year
  Sex: Male

DRUGS (13)
  1. DEXAMETHASONE. [Concomitant]
     Active Substance: DEXAMETHASONE
     Dosage: 40 MILLIGRAM
     Route: 065
  2. S-MORPHINE [Concomitant]
     Indication: NEUROPATHY PERIPHERAL
     Route: 048
     Dates: start: 20181126, end: 20181214
  3. GABAPENTIN. [Concomitant]
     Active Substance: GABAPENTIN
     Indication: NEUROPATHY PERIPHERAL
     Route: 048
     Dates: start: 20181126, end: 20181214
  4. PENIRAMIN [Concomitant]
     Indication: PRODUCT USED FOR UNKNOWN INDICATION
     Route: 041
     Dates: start: 20181215, end: 20181218
  5. LASIX [Concomitant]
     Active Substance: FUROSEMIDE
     Indication: PRODUCT USED FOR UNKNOWN INDICATION
     Route: 041
     Dates: start: 20181215, end: 20181218
  6. PANORIN [Concomitant]
     Indication: OSTEOPOROSIS
     Dosage: 60 MILLIGRAM
     Route: 041
     Dates: start: 20181126, end: 20181126
  7. MAGO [Concomitant]
     Indication: CONSTIPATION
     Dosage: 750 MILLIGRAM
     Route: 048
     Dates: start: 20181126, end: 20181214
  8. MIDAZOLAM. [Concomitant]
     Active Substance: MIDAZOLAM
     Indication: SEDATION
     Dosage: 225 MILLIGRAM
     Route: 041
     Dates: start: 20181215, end: 20181219
  9. POMALIDOMIDE [Suspect]
     Active Substance: POMALIDOMIDE
     Dosage: 4 MILLIGRAM
     Route: 048
     Dates: start: 20181126, end: 20181214
  10. DEXAMETHASONE. [Concomitant]
     Active Substance: DEXAMETHASONE
     Indication: PLASMA CELL MYELOMA
     Dosage: 40 MILLIGRAM
     Route: 065
     Dates: start: 20181029
  11. VECARON [Concomitant]
     Indication: SEDATION
     Dosage: 200 MILLIGRAM
     Route: 041
     Dates: start: 20181215, end: 20181218
  12. LANSTON LFDT [Concomitant]
     Active Substance: LANSOPRAZOLE
     Indication: GASTRITIS PROPHYLAXIS
     Dosage: 15 MILLIGRAM
     Route: 048
     Dates: start: 20181215, end: 20181218
  13. POMALIDOMIDE [Suspect]
     Active Substance: POMALIDOMIDE
     Indication: PLASMA CELL MYELOMA
     Dosage: 4 MILLIGRAM
     Route: 048
     Dates: start: 20181029, end: 20181118

REACTIONS (1)
  - Pneumonia [Fatal]

NARRATIVE: CASE EVENT DATE: 20181210
